FAERS Safety Report 10183048 (Version 1)
Quarter: 2014Q2

REPORT INFORMATION
  Report Type: Spontaneous
  Country: DE (occurrence: DE)
  Receive Date: 20140520
  Receipt Date: 20140520
  Transmission Date: 20141212
  Serious: Yes (Other)
  Sender: FDA-Public Use
  Company Number: DE-SA-2014SA060006

PATIENT
  Age: 62 Year
  Sex: Female

DRUGS (1)
  1. APROVEL [Suspect]
     Indication: BLOOD PRESSURE ABNORMAL
     Route: 048
     Dates: start: 2013

REACTIONS (3)
  - Hypersensitivity vasculitis [Not Recovered/Not Resolved]
  - Petechiae [Not Recovered/Not Resolved]
  - Skin haemorrhage [Not Recovered/Not Resolved]
